FAERS Safety Report 9729313 (Version 4)
Quarter: 2013Q4

REPORT INFORMATION
  Report Type: Spontaneous
  Country: US (occurrence: US)
  Receive Date: 20131204
  Receipt Date: 20131227
  Transmission Date: 20140711
  Serious: Yes (Other)
  Sender: FDA-Public Use
  Company Number: US-PFIZER INC-2013344871

PATIENT
  Age: 46 Year
  Sex: Male
  Weight: 80 kg

DRUGS (22)
  1. LEVETIRACETAM [Suspect]
     Indication: CONVULSION
     Dosage: 1 G, 2X/DAY
     Route: 048
  2. LEVETIRACETAM [Interacting]
     Indication: METASTASES TO CENTRAL NERVOUS SYSTEM
  3. METHOTREXATE SODIUM [Interacting]
     Indication: OSTEOSARCOMA RECURRENT
     Dosage: 24 G OF MTX (12 G/M2) OVER 4 HOURS
     Route: 042
  4. LISINOPRIL [Concomitant]
     Dosage: UNK
     Route: 065
  5. SIMVASTATIN [Concomitant]
     Dosage: UNK
     Route: 065
  6. INSULIN GLARGINE [Concomitant]
     Dosage: UNK
     Route: 065
  7. INSULIN ASPART [Concomitant]
     Dosage: UNK
     Route: 065
  8. OXYCODONE [Concomitant]
     Dosage: UNK
     Route: 065
  9. PROCHLORPERAZINE [Concomitant]
     Dosage: UNK
     Route: 065
  10. ONDANSETRON [Concomitant]
     Dosage: UNK
     Route: 065
  11. FAMOTIDINE [Concomitant]
     Dosage: UNK
     Route: 065
  12. ASPIRIN [Concomitant]
     Dosage: UNK
     Route: 065
  13. FLUOXETINE [Concomitant]
  14. IFOSFAMIDE [Concomitant]
     Indication: OSTEOSARCOMA
     Dosage: UNK
     Route: 065
  15. ETOPOSIDE [Concomitant]
     Indication: OSTEOSARCOMA
     Dosage: UNK
     Route: 065
  16. GLIPIZIDE [Concomitant]
     Dosage: UNK
     Route: 065
  17. CISPLATIN [Concomitant]
     Indication: CHEMOTHERAPY
     Route: 065
  18. DOXORUBICIN [Concomitant]
     Indication: CHEMOTHERAPY
     Dosage: UNK
     Route: 065
  19. CARBOPLATIN [Concomitant]
     Indication: CHEMOTHERAPY
     Dosage: UNK
     Route: 065
  20. LEUCOVORIN [Concomitant]
     Indication: CHEMOTHERAPY
     Dosage: 100 MG (25 MG,1 IN 6 HR)
     Route: 048
  21. LEUCOVORIN [Concomitant]
     Dosage: 200 MG (50 MG,1 IN 6 HR)
     Route: 042
  22. SODIUM BICARBONATE [Concomitant]
     Dosage: 100 MEQ, DAILY
     Route: 065

REACTIONS (2)
  - Drug interaction [Recovered/Resolved]
  - Drug clearance decreased [Recovered/Resolved]
